FAERS Safety Report 24929473 (Version 1)
Quarter: 2025Q1

REPORT INFORMATION
  Report Type: Spontaneous
  Country: US (occurrence: US)
  Receive Date: 20250205
  Receipt Date: 20250205
  Transmission Date: 20250409
  Serious: No
  Sender: SANOFI AVENTIS
  Company Number: US-SA-2025SA030731

PATIENT
  Age: 56 Year
  Sex: Female
  Weight: 80.64 kg

DRUGS (1)
  1. KEVZARA [Suspect]
     Active Substance: SARILUMAB
     Indication: Rheumatoid arthritis
     Dosage: 200 MG, QOW
     Route: 058
     Dates: end: 202501

REACTIONS (6)
  - Cough [Not Recovered/Not Resolved]
  - Dry skin [Unknown]
  - Injection site pain [Recovering/Resolving]
  - Injection site dryness [Unknown]
  - Nasopharyngitis [Not Recovered/Not Resolved]
  - Therapeutic response shortened [Unknown]

NARRATIVE: CASE EVENT DATE: 20250119
